FAERS Safety Report 19120519 (Version 1)
Quarter: 2021Q2

REPORT INFORMATION
  Report Type: Spontaneous
  Country: US (occurrence: US)
  Receive Date: 20210409
  Receipt Date: 20210409
  Transmission Date: 20210717
  Serious: Yes (Hospitalization)
  Sender: FDA-Public Use
  Company Number: None

PATIENT
  Age: 39 Year
  Sex: Female

DRUGS (22)
  1. ALBUTEROL HFA [Concomitant]
     Active Substance: ALBUTEROL SULFATE
  2. DEXAMETHASONE. [Concomitant]
     Active Substance: DEXAMETHASONE
  3. DULOXETINE. [Concomitant]
     Active Substance: DULOXETINE
  4. BENZONATATE. [Concomitant]
     Active Substance: BENZONATATE
  5. BUSPIRONE [Concomitant]
     Active Substance: BUSPIRONE HYDROCHLORIDE
  6. DOXYCYC MONO [Concomitant]
     Active Substance: DOXYCYCLINE
  7. NAPROXEN. [Concomitant]
     Active Substance: NAPROXEN
  8. AZITHROMYCIN ANHYDROUS. [Concomitant]
     Active Substance: AZITHROMYCIN ANHYDROUS
  9. FLOVENT HFA [Concomitant]
     Active Substance: FLUTICASONE PROPIONATE
  10. METOPROL TAR [Concomitant]
  11. AMBRISENTAN [Suspect]
     Active Substance: AMBRISENTAN
     Indication: ESSENTIAL HYPERTENSION
     Route: 048
     Dates: start: 20200624
  12. CARVEDILOL. [Concomitant]
     Active Substance: CARVEDILOL
  13. CHLO HIST [Concomitant]
     Active Substance: CHLOPHEDIANOL HYDROCHLORIDE\DEXBROMPHENIRAMINE MALEATE
  14. CLONDINE [Concomitant]
     Active Substance: CLONIDINE
  15. TIZANIDINE. [Concomitant]
     Active Substance: TIZANIDINE
  16. QUETIAPINE. [Concomitant]
     Active Substance: QUETIAPINE
  17. TADALAFIL. [Suspect]
     Active Substance: TADALAFIL
     Indication: PULMONARY ARTERIAL HYPERTENSION
     Route: 048
     Dates: start: 20200623
  18. AMOX/K CLAV [Concomitant]
     Active Substance: AMOXICILLIN\CLAVULANATE POTASSIUM
  19. DICLOFENAC GEL [Concomitant]
     Active Substance: DICLOFENAC
  20. DILTIAZEM. [Concomitant]
     Active Substance: DILTIAZEM
  21. PROMETHAZINE [Concomitant]
     Active Substance: PROMETHAZINE HYDROCHLORIDE
  22. OXYCODONE AND ACETAMINOPHEN [Concomitant]
     Active Substance: ACETAMINOPHEN\OXYCODONE HYDROCHLORIDE

REACTIONS (2)
  - Subcutaneous abscess [None]
  - Therapy interrupted [None]

NARRATIVE: CASE EVENT DATE: 20210401
